FAERS Safety Report 13238056 (Version 1)
Quarter: 2017Q1

REPORT INFORMATION
  Report Type: Spontaneous
  Country: US (occurrence: US)
  Receive Date: 20170215
  Receipt Date: 20170215
  Transmission Date: 20170428
  Serious: Yes (Other)
  Sender: FDA-Public Use
  Company Number: None

PATIENT
  Age: 64 Year
  Sex: Male
  Weight: 71.1 kg

DRUGS (2)
  1. FAMILY CARE LUBRICANT SINGLE USE EYE [Suspect]
     Active Substance: CARBOXYMETHYLCELLULOSE SODIUM
     Indication: FOREIGN BODY IN EYE
     Dosage: ?          QUANTITY:1 DROP(S);?
     Route: 047
     Dates: start: 20170209, end: 20170209
  2. MSM/GLUCOSAMINE COMPLEX [Concomitant]

REACTIONS (1)
  - Ocular hyperaemia [None]

NARRATIVE: CASE EVENT DATE: 20170209
